FAERS Safety Report 11982735 (Version 2)
Quarter: 2016Q1

REPORT INFORMATION
  Report Type: Spontaneous
  Country: US (occurrence: US)
  Receive Date: 20160201
  Receipt Date: 20160307
  Transmission Date: 20160526
  Serious: Yes (Other)
  Sender: FDA-Public Use
  Company Number: US-BAYER-2016-015488

PATIENT
  Sex: Female

DRUGS (1)
  1. YAZ [Suspect]
     Active Substance: DROSPIRENONE\ETHINYL ESTRADIOL
     Dosage: UNK
     Route: 048
     Dates: start: 2010

REACTIONS (5)
  - Benign intracranial hypertension [None]
  - Visual acuity reduced [None]
  - Blindness [None]
  - Thrombosis [None]
  - Seizure [None]

NARRATIVE: CASE EVENT DATE: 201010
